FAERS Safety Report 20918162 (Version 2)
Quarter: 2022Q2

REPORT INFORMATION
  Report Type: Spontaneous
  Country: CH (occurrence: CH)
  Receive Date: 20220606
  Receipt Date: 20220609
  Transmission Date: 20220720
  Serious: Yes (Other)
  Sender: FDA-Public Use
  Company Number: CH-LUNDBECK-DKLU3048552

PATIENT
  Age: 24 Year
  Sex: Female

DRUGS (1)
  1. BRINTELLIX [Suspect]
     Active Substance: VORTIOXETINE HYDROBROMIDE
     Indication: Depression
     Dosage: UNK
     Route: 048
     Dates: start: 2019, end: 202204

REACTIONS (3)
  - Metabolic surgery [Unknown]
  - Therapy interrupted [Unknown]
  - Depression [Unknown]

NARRATIVE: CASE EVENT DATE: 20220401
